FAERS Safety Report 4976804-3 (Version None)
Quarter: 2006Q2

REPORT INFORMATION
  Report Type: 
  Country: None (occurrence: None)
  Receive Date: 20060413
  Receipt Date: 20060404
  Transmission Date: 20061013
  Serious: Yes (Hospitalization)
  Sender: FDA-Public Use
  Company Number: S06-USA-00959-01

PATIENT
  Age: 60 Year
  Sex: Female

DRUGS (2)
  1. LEXAPRO [Suspect]
     Dates: end: 20060401
  2. VITAMIN B-12 [Concomitant]

REACTIONS (1)
  - ERYTHEMA MULTIFORME [None]
